FAERS Safety Report 10305655 (Version 2)
Quarter: 2014Q3

REPORT INFORMATION
  Report Type: Spontaneous
  Country: IT (occurrence: IT)
  Receive Date: 20140715
  Receipt Date: 20140717
  Transmission Date: 20150326
  Serious: Yes (Other)
  Sender: FDA-Public Use
  Company Number: IT-PFIZER INC-2014194241

PATIENT
  Age: 63 Year
  Sex: Male

DRUGS (3)
  1. TENORMIN [Suspect]
     Active Substance: ATENOLOL
     Dosage: 25 MG, DAILY (STRENGTH: 100MG)
     Route: 048
     Dates: start: 20140101, end: 20140521
  2. CRESTOR [Concomitant]
     Active Substance: ROSUVASTATIN CALCIUM
     Dosage: 10 MG, UNK
  3. CARDIOASPIRIN [Concomitant]
     Active Substance: ASPIRIN
     Dosage: 100 MG, UNK
     Route: 048

REACTIONS (3)
  - Sinus bradycardia [Unknown]
  - Hyperkalaemia [Recovering/Resolving]
  - Presyncope [Recovering/Resolving]

NARRATIVE: CASE EVENT DATE: 20140521
